FAERS Safety Report 13664758 (Version 1)
Quarter: 2017Q2

REPORT INFORMATION
  Report Type: Spontaneous
  Country: US (occurrence: US)
  Receive Date: 20170619
  Receipt Date: 20170619
  Transmission Date: 20170830
  Serious: Yes (Hospitalization, Other)
  Sender: FDA-Public Use
  Company Number: US-SMITH AND NEPHEW, INC-2017SMT00420

PATIENT
  Age: 75 Year
  Sex: Male
  Weight: 99.77 kg

DRUGS (1)
  1. REGRANEX [Suspect]
     Active Substance: BECAPLERMIN
     Indication: DIABETIC ULCER
     Dosage: UNK, 1X/DAY FOR 12 HOURS ON AND 12 HOURS OFF
     Route: 061
     Dates: start: 201705, end: 20170527

REACTIONS (4)
  - Leg amputation [Recovered/Resolved with Sequelae]
  - Infection [Recovered/Resolved]
  - Gangrene [Recovered/Resolved]
  - Peripheral vascular disorder [Unknown]

NARRATIVE: CASE EVENT DATE: 20170531
